FAERS Safety Report 15221325 (Version 1)
Quarter: 2018Q3

REPORT INFORMATION
  Report Type: Report from Study
  Country: CO (occurrence: CO)
  Receive Date: 20180731
  Receipt Date: 20180731
  Transmission Date: 20181010
  Serious: Yes (Other)
  Sender: FDA-Public Use
  Company Number: PHHY2018CO041760

PATIENT
  Age: 82 Year
  Sex: Female
  Weight: 49 kg

DRUGS (5)
  1. SANDOSTATIN LAR DEPOT [Suspect]
     Active Substance: OCTREOTIDE ACETATE
     Indication: NEOPLASM MALIGNANT
  2. FUROSEMIDE. [Concomitant]
     Active Substance: FUROSEMIDE
     Indication: PRODUCT USED FOR UNKNOWN INDICATION
     Route: 065
  3. LOSARTAN. [Suspect]
     Active Substance: LOSARTAN
     Indication: PRODUCT USED FOR UNKNOWN INDICATION
     Route: 065
  4. AMLODIPINE [Suspect]
     Active Substance: AMLODIPINE BESYLATE
     Indication: PRODUCT USED FOR UNKNOWN INDICATION
     Route: 065
  5. SANDOSTATIN LAR DEPOT [Suspect]
     Active Substance: OCTREOTIDE ACETATE
     Indication: ACROMEGALY
     Dosage: 30 MG, QMO (MONTHLY)
     Route: 030
     Dates: start: 20170920, end: 20180226

REACTIONS (10)
  - Depression [Not Recovered/Not Resolved]
  - Diarrhoea [Not Recovered/Not Resolved]
  - Depressed mood [Unknown]
  - Asthenia [Unknown]
  - Malignant neoplasm progression [Unknown]
  - Eating disorder [Unknown]
  - Nasopharyngitis [Unknown]
  - Neoplasm progression [Unknown]
  - Metastasis [Unknown]
  - Malaise [Unknown]

NARRATIVE: CASE EVENT DATE: 201805
